FAERS Safety Report 24961745 (Version 2)
Quarter: 2025Q3

REPORT INFORMATION
  Report Type: Spontaneous
  Country: AU (occurrence: AU)
  Receive Date: 20250212
  Receipt Date: 20250803
  Transmission Date: 20251021
  Serious: Yes (Other)
  Sender: ALEXION PHARMACEUTICALS
  Company Number: AU-ASTRAZENECA-202502OCE001871AU

PATIENT
  Age: 57 Year
  Sex: Male
  Weight: 104.4 kg

DRUGS (15)
  1. EVUSHELD [Suspect]
     Active Substance: CILGAVIMAB\TIXAGEVIMAB
     Indication: Prophylaxis
     Route: 065
  2. AZD-1222 [Suspect]
     Active Substance: AZD-1222
     Indication: COVID-19 immunisation
     Route: 065
  3. AZD-1222 [Suspect]
     Active Substance: AZD-1222
     Indication: COVID-19 immunisation
     Route: 065
  4. COMIRNATY (TOZINAMERAN) [Suspect]
     Active Substance: TOZINAMERAN
     Indication: COVID-19 immunisation
     Route: 065
  5. MYFORTIC [Concomitant]
     Active Substance: MYCOPHENOLATE SODIUM
     Indication: Immunosuppressant drug therapy
     Dosage: DOSE: 1440 MILLIGRAM; INTERVAL: 1 DAY
  6. PROGRAF [Concomitant]
     Active Substance: TACROLIMUS
     Indication: Immunosuppressant drug therapy
     Dosage: DOSE: 4 MILLIGRAM; INTERVAL: 1 DAY
  7. ASPIRIN [Concomitant]
     Active Substance: ASPIRIN
     Dosage: DOSE: 100 MILLIGRAM; INTERVAL: 1 DAY
  8. ESOMEPRAZOLE [Concomitant]
     Active Substance: ESOMEPRAZOLE
     Dosage: DOSE: 20 MILLIGRAM; INTERVAL: 1 DAY
  9. GLICLAZIDE [Concomitant]
     Active Substance: GLICLAZIDE
     Dosage: DOSE: 30 MILLIGRAM; INTERVAL: 1 DAY
  10. METOPROLOL [Concomitant]
     Active Substance: METOPROLOL
     Dosage: DOSE: 100 MILLIGRAM; INTERVAL: 1 DAY
  11. PREDNISONE [Concomitant]
     Active Substance: PREDNISONE
     Indication: Immunosuppressant drug therapy
     Dosage: DOSE: 7 MILLIGRAM; INTERVAL: 1 DAY
  12. METFORMIN [Concomitant]
     Active Substance: METFORMIN HYDROCHLORIDE
     Dosage: INTERVAL: 1 DAY
  13. SULFAMETHOXAZOLE\TRIMETHOPRIM [Concomitant]
     Active Substance: SULFAMETHOXAZOLE\TRIMETHOPRIM
     Dosage: DOSE: 1000 MILLIGRAM; INTERVAL: 1 DAY
  14. SEMAGLUTIDE [Concomitant]
     Active Substance: SEMAGLUTIDE
     Dosage: DOSE: 1 MILLIGRAM; INTERVAL: 1 WEEK
  15. SODIUM BICARBONATE [Concomitant]
     Active Substance: SODIUM BICARBONATE
     Dosage: DOSE: 1680 MILLIGRAM; INTERVAL: 1 DAY

REACTIONS (2)
  - COVID-19 [Unknown]
  - Drug ineffective [Unknown]
